FAERS Safety Report 12252146 (Version 3)
Quarter: 2016Q3

REPORT INFORMATION
  Report Type: Report from Study
  Country: BR (occurrence: BR)
  Receive Date: 20160411
  Receipt Date: 20160929
  Transmission Date: 20161109
  Serious: Yes (Hospitalization, Other)
  Sender: FDA-Public Use
  Company Number: BR-ROCHE-1636791

PATIENT
  Sex: Female
  Weight: 63 kg

DRUGS (9)
  1. BENICAR [Concomitant]
     Active Substance: OLMESARTAN MEDOXOMIL
     Indication: HYPERTENSION
     Route: 065
  2. PRELONE [Concomitant]
     Active Substance: PREDNISOLONE
     Dosage: 3 MG/ML
     Route: 065
  3. PRELONE [Concomitant]
     Active Substance: PREDNISOLONE
     Indication: RHEUMATOID ARTHRITIS
     Dosage: 6 MG
     Route: 065
  4. ACTEMRA [Suspect]
     Active Substance: TOCILIZUMAB
     Indication: RHEUMATOID ARTHRITIS
     Dosage: ON 01/JAN/2016, LATEST INFUSION WAS RECEIVED
     Route: 042
     Dates: start: 20150409
  5. ACTEMRA [Suspect]
     Active Substance: TOCILIZUMAB
     Route: 042
     Dates: start: 20151201
  6. ARAVA [Concomitant]
     Active Substance: LEFLUNOMIDE
  7. OSTEONUTRI [Concomitant]
     Route: 065
  8. DEPURA [Concomitant]
     Active Substance: CHOLECALCIFEROL
     Route: 065
  9. GLIFAGE XR [Concomitant]
     Active Substance: METFORMIN HYDROCHLORIDE
     Indication: GLUCOSE TOLERANCE IMPAIRED
     Route: 065

REACTIONS (6)
  - Skin ulcer [Recovering/Resolving]
  - Flavivirus infection [Unknown]
  - Skin fissures [Unknown]
  - Immunodeficiency [Unknown]
  - Skin fissures [Recovered/Resolved]
  - Lymphangitis [Unknown]
